FAERS Safety Report 5846692-1 (Version None)
Quarter: 2008Q3

REPORT INFORMATION
  Report Type: 
  Country: None (occurrence: None)
  Receive Date: 20080815
  Receipt Date: 20080806
  Transmission Date: 20090109
  Serious: Yes (Other)
  Sender: FDA-Public Use
  Company Number: US-JNJFOC-20080802079

PATIENT
  Age: 40 Year
  Sex: Female
  Weight: 70.31 kg

DRUGS (9)
  1. TOPAMAX [Suspect]
     Dosage: 100MG, 25MG
     Route: 048
  2. TOPAMAX [Suspect]
     Indication: MIGRAINE PROPHYLAXIS
     Dosage: 75MG - 100MG DAILY
     Route: 048
  3. PROZAC [Concomitant]
     Indication: DEPRESSION
  4. CYMBALTA [Concomitant]
     Indication: DEPRESSION
     Route: 048
  5. MULTI-VITAMIN [Concomitant]
     Indication: MEDICAL DIET
     Route: 048
  6. ASPIRIN [Concomitant]
     Route: 048
  7. METAMUCIL [Concomitant]
     Indication: CONSTIPATION
     Route: 048
  8. COLACE [Concomitant]
     Indication: CONSTIPATION
     Route: 048
  9. AMBIEN [Concomitant]
     Indication: SLEEP DISORDER THERAPY
     Route: 048

REACTIONS (4)
  - DECREASED APPETITE [None]
  - DEPRESSION [None]
  - ROTATOR CUFF SYNDROME [None]
  - WEIGHT DECREASED [None]
